FAERS Safety Report 23445676 (Version 1)
Quarter: 2024Q1

REPORT INFORMATION
  Report Type: Spontaneous
  Country: US (occurrence: US)
  Receive Date: 20240126
  Receipt Date: 20240126
  Transmission Date: 20240410
  Serious: No
  Sender: FDA-Public Use
  Company Number: US-APIL-2312234US

PATIENT
  Age: 41 Year
  Sex: Female
  Weight: 56 kg

DRUGS (5)
  1. LATISSE [Suspect]
     Active Substance: BIMATOPROST
     Indication: Product used for unknown indication
     Dosage: 0.03%? DURATION TEXT: FOR MANY YEARS?FORM STRENGTH- 0.3MG/ML SOLUTION
     Route: 065
     Dates: start: 2023, end: 20230301
  2. LATISSE [Suspect]
     Active Substance: BIMATOPROST
     Dosage: ONCE OR TWICE USED? 0.03%?DURATION TEXT: FOR MANY YEARS?FORM STRENGTH- 0.3MG/ML SOLUTION
     Route: 065
     Dates: start: 20231102
  3. DEXAMETHASONE\NEOMYCIN\POLYMYXIN B [Concomitant]
     Active Substance: DEXAMETHASONE\NEOMYCIN\POLYMYXIN B
     Indication: Product used for unknown indication
     Dosage: 0.1% OP  SUSPENSION
  4. OFLOXACIN [Concomitant]
     Active Substance: OFLOXACIN
     Indication: Product used for unknown indication
     Dosage: 0.3 %  OP SQ
  5. AZELASTINE HYDROCHLORIDE [Concomitant]
     Active Substance: AZELASTINE HYDROCHLORIDE
     Indication: Product used for unknown indication

REACTIONS (3)
  - Eye infection [Recovered/Resolved]
  - Eye irritation [Unknown]
  - Eye infection [Unknown]

NARRATIVE: CASE EVENT DATE: 20230216
